FAERS Safety Report 9733030 (Version 1)
Quarter: 2013Q4

REPORT INFORMATION
  Report Type: Spontaneous
  Country: US (occurrence: US)
  Receive Date: 20131204
  Receipt Date: 20131204
  Transmission Date: 20140711
  Serious: No
  Sender: FDA-Public Use
  Company Number: US-GILEAD-2009-0022258

PATIENT
  Age: 71 Year
  Sex: Female

DRUGS (11)
  1. LETAIRIS [Suspect]
     Indication: PULMONARY ARTERIAL HYPERTENSION
     Route: 048
     Dates: start: 20090501, end: 20090512
  2. REVATIO [Concomitant]
  3. WARFARIN [Concomitant]
  4. FUROSEMIDE [Concomitant]
  5. TOPROL XL [Concomitant]
  6. BENAZEPRIL [Concomitant]
  7. VYTORIN [Concomitant]
  8. GLYBURIDE [Concomitant]
  9. ALLOPURINOL [Concomitant]
  10. LEVOTHYROXINE [Concomitant]
  11. IRON [Concomitant]

REACTIONS (1)
  - Palpitations [Recovered/Resolved]
